FAERS Safety Report 6850655-7 (Version None)
Quarter: 2010Q3

REPORT INFORMATION
  Report Type: 
  Country: None (occurrence: None)
  Receive Date: 20100716
  Receipt Date: 20100708
  Transmission Date: 20110219
  Serious: Yes (Hospitalization)
  Sender: FDA-Public Use
  Company Number: US-AMGEN-KDL423408

PATIENT
  Age: 46 Year
  Sex: Female

DRUGS (9)
  1. PROCRIT [Suspect]
     Indication: HIV INFECTION
  2. NORVIR [Concomitant]
  3. PREZISTA [Concomitant]
  4. ZIDOVUDINE [Concomitant]
  5. CLONIDINE [Concomitant]
  6. AMLODIPINE [Concomitant]
  7. LEVEMIR [Concomitant]
  8. UNSPECIFIED ALLERGY MEDICATION [Concomitant]
  9. UNSPECIFIED MEDICATION [Concomitant]

REACTIONS (3)
  - PNEUMONIA [None]
  - RED BLOOD CELL COUNT DECREASED [None]
  - RENAL DISORDER [None]
